FAERS Safety Report 15712712 (Version 2)
Quarter: 2021Q2

REPORT INFORMATION
  Report Type: Spontaneous
  Country: IT (occurrence: IT)
  Receive Date: 20181212
  Receipt Date: 20210421
  Transmission Date: 20210716
  Serious: Yes (Other)
  Sender: FDA-Public Use
  Company Number: IT-AUROBINDO-AUR-APL-2017-44283

PATIENT
  Age: 63 Year
  Sex: Female

DRUGS (2)
  1. SEVELAMER [Suspect]
     Active Substance: SEVELAMER
     Indication: CHRONIC KIDNEY DISEASE
     Dosage: 4.8 GRAM, ONCE A DAY
     Route: 065
  2. SEVELAMER [Suspect]
     Active Substance: SEVELAMER
     Indication: END STAGE RENAL DISEASE

REACTIONS (2)
  - Colitis [Unknown]
  - Crystal deposit intestine [Unknown]
